FAERS Safety Report 6358320-X (Version None)
Quarter: 2009Q3

REPORT INFORMATION
  Report Type: 
  Country: None (occurrence: None)
  Receive Date: 20090916
  Receipt Date: 20090914
  Transmission Date: 20100115
  Serious: Yes (Death, Other)
  Sender: FDA-Public Use
  Company Number: PHEH2009US10875

PATIENT
  Sex: Male

DRUGS (1)
  1. EXJADE [Suspect]
     Dosage: 1500 MG DAILY
     Route: 048

REACTIONS (2)
  - DEATH [None]
  - DEMENTIA [None]
